FAERS Safety Report 11513514 (Version 2)
Quarter: 2015Q3

REPORT INFORMATION
  Report Type: Report from Study
  Country: JP (occurrence: JP)
  Receive Date: 20150916
  Receipt Date: 20150916
  Transmission Date: 20151125
  Serious: Yes (Hospitalization)
  Sender: FDA-Public Use
  Company Number: JP-EISAI MEDICAL RESEARCH-EC-2015-010389

PATIENT
  Age: 60 Year
  Sex: Male
  Weight: 53 kg

DRUGS (8)
  1. CALONAL [Concomitant]
     Active Substance: ACETAMINOPHEN
  2. MAGLAX [Concomitant]
     Active Substance: MAGNESIUM OXIDE
  3. THYRADIN S [Concomitant]
     Active Substance: LEVOTHYROXINE SODIUM
  4. LENVATINIB [Suspect]
     Active Substance: LENVATINIB
     Indication: RENAL CELL CARCINOMA
     Route: 048
     Dates: start: 20150901, end: 20150908
  5. EVEROLIMUS [Concomitant]
     Active Substance: EVEROLIMUS
     Indication: RENAL CELL CARCINOMA
     Route: 048
     Dates: start: 20150901, end: 20150908
  6. BLOPRESS [Concomitant]
     Active Substance: CANDESARTAN CILEXETIL
  7. PRIMPERAN [Concomitant]
     Active Substance: METOCLOPRAMIDE HYDROCHLORIDE
  8. CODEINE PHOSPHATE HYDRATE [Concomitant]
     Active Substance: CODEINE PHOSPHATE

REACTIONS (1)
  - Cancer pain [Not Recovered/Not Resolved]

NARRATIVE: CASE EVENT DATE: 20150905
